FAERS Safety Report 5817521-7 (Version None)
Quarter: 2008Q3

REPORT INFORMATION
  Report Type: 
  Country: None (occurrence: None)
  Receive Date: 20080722
  Receipt Date: 20080716
  Transmission Date: 20090109
  Serious: Yes (Other)
  Sender: FDA-Public Use
  Company Number: BR-JNJFOC-20080701255

PATIENT
  Age: 38 Year
  Sex: Male

DRUGS (4)
  1. TOPAMAX [Suspect]
     Indication: ALCOHOLISM
     Route: 048
  2. TOPAMAX [Suspect]
     Indication: BIPOLAR DISORDER
     Route: 048
  3. SODIUM DIVALPROATE [Concomitant]
     Indication: ALCOHOLISM
  4. SODIUM DIVALPROATE [Concomitant]
     Indication: BIPOLAR DISORDER

REACTIONS (1)
  - APNOEA [None]
